FAERS Safety Report 17526038 (Version 4)
Quarter: 2020Q3

REPORT INFORMATION
  Report Type: Report from Study
  Country: US (occurrence: US)
  Receive Date: 20200311
  Receipt Date: 20200706
  Transmission Date: 20201102
  Serious: Yes (Hospitalization, Other)
  Sender: FDA-Public Use
  Company Number: US-AGIOS-2002US01695

PATIENT

DRUGS (1)
  1. TIBSOVO [Suspect]
     Active Substance: IVOSIDENIB
     Indication: BILE DUCT CANCER
     Dosage: 250MG, 2 TABLETS (500MG) DAILY
     Route: 048
     Dates: start: 20200204, end: 20200630

REACTIONS (3)
  - Off label use [Unknown]
  - Hepatic infection [Unknown]
  - Hepatic infection [Unknown]

NARRATIVE: CASE EVENT DATE: 20200204
